FAERS Safety Report 8138059-0 (Version None)
Quarter: 2012Q1

REPORT INFORMATION
  Report Type: 
  Country: None (occurrence: None)
  Receive Date: 20120213
  Receipt Date: 20120206
  Transmission Date: 20120608
  Serious: Yes (Hospitalization)
  Sender: FDA-Public Use
  Company Number: 2012-000445

PATIENT
  Age: 72 Year
  Sex: Female

DRUGS (4)
  1. ESTRACE [Suspect]
     Indication: VULVOVAGINAL DRYNESS
     Dosage: 1 GRAM PER DAY, VAGINAL : TWICE WEEKLY, VAGINAL
     Route: 067
     Dates: start: 20100101, end: 20111101
  2. ESTRACE [Suspect]
     Indication: PELVIC FLOOR MUSCLE WEAKNESS
     Dosage: 1 GRAM PER DAY, VAGINAL : TWICE WEEKLY, VAGINAL
     Route: 067
     Dates: start: 20100101, end: 20111101
  3. ESTRACE [Suspect]
     Indication: VULVOVAGINAL DRYNESS
     Dosage: 1 GRAM PER DAY, VAGINAL : TWICE WEEKLY, VAGINAL
     Route: 067
     Dates: start: 20100101, end: 20100801
  4. ESTRACE [Suspect]
     Indication: PELVIC FLOOR MUSCLE WEAKNESS
     Dosage: 1 GRAM PER DAY, VAGINAL : TWICE WEEKLY, VAGINAL
     Route: 067
     Dates: start: 20100101, end: 20100801

REACTIONS (1)
  - TRANSIENT ISCHAEMIC ATTACK [None]
